FAERS Safety Report 5258414-6 (Version None)
Quarter: 2007Q1

REPORT INFORMATION
  Report Type: 
  Country: None (occurrence: None)
  Receive Date: 20070306
  Receipt Date: 20070306
  Transmission Date: 20070707
  Serious: Yes (Hospitalization)
  Sender: FDA-Public Use
  Company Number: None

PATIENT
  Age: 82 Year
  Sex: Female
  Weight: 103.4201 kg

DRUGS (9)
  1. COUMADIN [Suspect]
     Indication: DEEP VEIN THROMBOSIS
     Dosage: 10MG PO DAILY
     Route: 048
     Dates: start: 20060922, end: 20061001
  2. LOVENOX [Suspect]
     Indication: DEEP VEIN THROMBOSIS
     Dosage: BID
     Dates: start: 20060922, end: 20061001
  3. LISINOPRIL [Concomitant]
  4. LOMOTIL [Concomitant]
  5. SYNTHROID [Concomitant]
  6. LASIX [Concomitant]
  7. ATENOLOL [Concomitant]
  8. ATIVAN [Concomitant]
  9. CYMBALTA [Concomitant]

REACTIONS (7)
  - BLISTER [None]
  - CONTUSION [None]
  - HAEMORRHAGIC ANAEMIA [None]
  - HYPOTENSION [None]
  - LIMB INJURY [None]
  - NECROSIS [None]
  - PAIN IN EXTREMITY [None]
